FAERS Safety Report 18799989 (Version 1)
Quarter: 2021Q1

REPORT INFORMATION
  Report Type: Spontaneous
  Country: US (occurrence: US)
  Receive Date: 20210128
  Receipt Date: 20210128
  Transmission Date: 20210419
  Serious: No
  Sender: FDA-Public Use
  Company Number: None

PATIENT
  Age: 83 Year
  Sex: Female
  Weight: 51.26 kg

DRUGS (6)
  1. IBRANCE [Suspect]
     Active Substance: PALBOCICLIB
     Indication: BREAST CANCER
     Route: 048
     Dates: start: 20210104, end: 20210128
  2. ASPIRIN 81 [Concomitant]
     Active Substance: ASPIRIN
  3. NATURAL TEARS [Concomitant]
     Active Substance: POLYVINYL ALCOHOL\POVIDONE
  4. LETROZOLE. [Concomitant]
     Active Substance: LETROZOLE
  5. AMLODIPINE [Concomitant]
     Active Substance: AMLODIPINE BESYLATE
  6. LEVOTHYROXINE SOD [Concomitant]

REACTIONS (1)
  - Neutrophil count abnormal [None]

NARRATIVE: CASE EVENT DATE: 20210128
